FAERS Safety Report 5865506-7 (Version None)
Quarter: 2008Q3

REPORT INFORMATION
  Report Type: 
  Country: None (occurrence: None)
  Receive Date: 20080829
  Receipt Date: 20070427
  Transmission Date: 20090109
  Serious: Yes (Other)
  Sender: FDA-Public Use
  Company Number: US-BAYER-200830901NA

PATIENT
  Sex: Female

DRUGS (2)
  1. AVELOX [Suspect]
     Indication: DRUG USE FOR UNKNOWN INDICATION
     Route: 048
     Dates: start: 20070201
  2. AVELOX [Suspect]
     Route: 042
     Dates: start: 20070204

REACTIONS (5)
  - FLATULENCE [None]
  - HYPOAESTHESIA [None]
  - NERVOUSNESS [None]
  - PARALYSIS [None]
  - VOMITING [None]
